FAERS Safety Report 9500208 (Version 7)
Quarter: 2014Q2

REPORT INFORMATION
  Report Type: Report from Study
  Country: AU (occurrence: AU)
  Receive Date: 20130905
  Receipt Date: 20140521
  Transmission Date: 20141212
  Serious: Yes (Hospitalization, Other)
  Sender: FDA-Public Use
  Company Number: AU-ROCHE-1100437

PATIENT
  Age: 53 Year
  Sex: Female
  Weight: 65 kg

DRUGS (3)
  1. ACTEMRA [Suspect]
     Indication: RHEUMATOID ARTHRITIS
     Route: 042
     Dates: start: 20101020
  2. ACTEMRA [Suspect]
     Dosage: DOSE: 8 MG/KG
     Route: 042
     Dates: start: 20130411
  3. ARAVA [Concomitant]
     Indication: RHEUMATOID ARTHRITIS
     Route: 048
     Dates: start: 2011

REACTIONS (4)
  - Device related infection [Not Recovered/Not Resolved]
  - Hip arthroplasty [Unknown]
  - Hip arthroplasty [Not Recovered/Not Resolved]
  - Arthritis [Recovered/Resolved]
